FAERS Safety Report 18422138 (Version 2)
Quarter: 2020Q4

REPORT INFORMATION
  Report Type: Spontaneous
  Country: US (occurrence: US)
  Receive Date: 20201023
  Receipt Date: 20201117
  Transmission Date: 20210114
  Serious: Yes (Other)
  Sender: FDA-Public Use
  Company Number: US-ASTRAZENECA-2020SF36405

PATIENT
  Age: 68 Year
  Sex: Male
  Weight: 140.6 kg

DRUGS (3)
  1. METFORMIN [Concomitant]
     Active Substance: METFORMIN HYDROCHLORIDE
     Indication: TYPE 2 DIABETES MELLITUS
     Route: 048
  2. GLIMEPIRIDE. [Concomitant]
     Active Substance: GLIMEPIRIDE
  3. BYDUREON [Suspect]
     Active Substance: EXENATIDE
     Indication: TYPE 2 DIABETES MELLITUS
     Route: 058

REACTIONS (10)
  - Intentional device misuse [Unknown]
  - Injection site scar [Unknown]
  - Device issue [Unknown]
  - Product administration error [Unknown]
  - Arthropathy [Unknown]
  - Malaise [Unknown]
  - Injection site pain [Unknown]
  - Device dispensing error [Unknown]
  - Incorrect dose administered by device [Unknown]
  - Product preparation error [Unknown]
